FAERS Safety Report 9579989 (Version 1)
Quarter: 2013Q3

REPORT INFORMATION
  Report Type: Spontaneous
  Country: US (occurrence: None)
  Receive Date: 20130916
  Receipt Date: 20130916
  Transmission Date: 20140515
  Serious: Yes (Other)
  Sender: FDA-Public Use
  Company Number: JPI-P-025534

PATIENT
  Age: 55 Year
  Sex: Male

DRUGS (6)
  1. XYREM [Suspect]
     Indication: INSOMNIA
     Route: 048
     Dates: start: 20100113
  2. METOPROLOL SUCCINATE [Concomitant]
  3. DULOXETINE HYDROCHLORIDE [Concomitant]
  4. CLONAZEPAM [Concomitant]
  5. ROSUVASTATIN [Concomitant]
  6. NIACIN [Concomitant]

REACTIONS (6)
  - Blood pressure increased [None]
  - Cough [None]
  - Nasal congestion [None]
  - Insomnia [None]
  - Dysgeusia [None]
  - Nasopharyngitis [None]
